FAERS Safety Report 7051302-4 (Version None)
Quarter: 2010Q4

REPORT INFORMATION
  Report Type: 
  Country: None (occurrence: None)
  Receive Date: 20101019
  Receipt Date: 20090918
  Transmission Date: 20110411
  Serious: No
  Sender: FDA-Public Use
  Company Number: US-MYLANLABS-2009S1016729

PATIENT
  Sex: Female

DRUGS (1)
  1. MIDODRINE HYDROCHLORIDE [Suspect]
     Route: 048
     Dates: start: 20090901

REACTIONS (5)
  - CHILLS [None]
  - DRUG INEFFECTIVE [None]
  - HOT FLUSH [None]
  - NAUSEA [None]
  - PILOERECTION [None]
